FAERS Safety Report 19715672 (Version 1)
Quarter: 2021Q3

REPORT INFORMATION
  Report Type: Spontaneous
  Country: US (occurrence: US)
  Receive Date: 20210818
  Receipt Date: 20210818
  Transmission Date: 20211014
  Serious: Yes (Death, Life-Threatening, Other)
  Sender: FDA-Public Use
  Company Number: US-AMGEN-USASP2021124460

PATIENT

DRUGS (6)
  1. ARA?C [Concomitant]
     Active Substance: CYTARABINE
     Indication: ACUTE MYELOID LEUKAEMIA
     Dosage: 2 GRAM PER SQUARE METRE (ON DAYS 2?6)
     Route: 042
  2. ALL?TRANS RETINOIC ACID [Concomitant]
     Active Substance: TRETINOIN
     Indication: ACUTE MYELOID LEUKAEMIA
     Dosage: 15 MILLIGRAM/SQ. METER, QD (IN TWO DIVIDED DOSES, ON DAYS 7?20)
     Route: 048
  3. FILGRASTIM [Suspect]
     Active Substance: FILGRASTIM
     Indication: PRODUCT USED FOR UNKNOWN INDICATION
     Dosage: 300 MICROGRAM (ON DAYS 1?6)
     Route: 058
  4. CLADRIBINE. [Concomitant]
     Active Substance: CLADRIBINE
     Indication: ACUTE MYELOID LEUKAEMIA
     Dosage: 5 MILLIGRAM/SQ. METER (ON DAYS 2?6)
     Route: 042
  5. MIDOSTAURIN [Concomitant]
     Active Substance: MIDOSTAURIN
     Indication: ACUTE MYELOID LEUKAEMIA
     Dosage: 25 MILLIGRAM, BID (ON DAYS 7?20, COHORT 1)
     Route: 048
  6. MIDOSTAURIN [Concomitant]
     Active Substance: MIDOSTAURIN
     Dosage: 50 MILLIGRAM, BID (ON DAYS 7?20, COHORT 2)
     Route: 048

REACTIONS (27)
  - Death [Fatal]
  - Metabolic disorder [Unknown]
  - Respiratory failure [Fatal]
  - Haematotoxicity [Unknown]
  - Pulmonary toxicity [Unknown]
  - Hypokalaemia [Unknown]
  - Hyperkalaemia [Unknown]
  - Hepatotoxicity [Unknown]
  - Genitourinary symptom [Unknown]
  - Sinusitis [Unknown]
  - Infection [Unknown]
  - Neurotoxicity [Unknown]
  - Cardiovascular disorder [Unknown]
  - Hyperglycaemia [Unknown]
  - Thrombocytopenia [Unknown]
  - Pulmonary haemorrhage [Fatal]
  - Toxicity to various agents [Unknown]
  - Hyponatraemia [Unknown]
  - Hypertriglyceridaemia [Unknown]
  - Gene mutation [Unknown]
  - Therapy partial responder [Unknown]
  - Pneumonia [Unknown]
  - Sepsis [Unknown]
  - Skin toxicity [Unknown]
  - Adverse event [Unknown]
  - Acute myeloid leukaemia [Fatal]
  - Gastrointestinal toxicity [Unknown]
